FAERS Safety Report 9684741 (Version 2)
Quarter: 2014Q2

REPORT INFORMATION
  Report Type: Report from Study
  Country: AU (occurrence: AU)
  Receive Date: 20131112
  Receipt Date: 20140515
  Transmission Date: 20141212
  Serious: Yes (Hospitalization, Other)
  Sender: FDA-Public Use
  Company Number: AU-ROCHE-1302805

PATIENT
  Age: 58 Year
  Sex: Male
  Weight: 114 kg

DRUGS (20)
  1. OMALIZUMAB [Suspect]
     Indication: ASTHMA
     Route: 058
     Dates: start: 20100101
  2. OMALIZUMAB [Suspect]
     Route: 058
     Dates: start: 20120202
  3. OMALIZUMAB [Suspect]
     Route: 058
     Dates: start: 20120927
  4. OMALIZUMAB [Suspect]
     Route: 058
     Dates: start: 20130426
  5. OMALIZUMAB [Suspect]
     Route: 058
     Dates: start: 20130513
  6. OMALIZUMAB [Suspect]
     Route: 065
  7. SYMBICORT [Concomitant]
     Dosage: DOSE: 400/12
     Route: 065
     Dates: start: 20050718, end: 20130513
  8. SYMBICORT [Concomitant]
     Dosage: DOSE: 400/12 STARTED ON AN UNKNOWN DATE
     Route: 065
  9. AVAPRO HCT [Concomitant]
     Dosage: DOSE: 300/25
     Route: 065
     Dates: start: 20070101, end: 20130513
  10. AVAPRO HCT [Concomitant]
     Dosage: DOSE: 300/25 STARTED ON AN UNKNOWN DATE.
     Route: 065
  11. FISH OIL CONCENTRATE [Concomitant]
     Route: 065
     Dates: start: 20110101, end: 20130513
  12. FISH OIL CONCENTRATE [Concomitant]
     Dosage: UNKNOWN DOSE STARTED ON AN UNKNOWN DATE.
     Route: 065
  13. LIPITOR [Concomitant]
     Route: 065
     Dates: start: 20110101, end: 20130513
  14. LIPITOR [Concomitant]
     Dosage: UNKNOWN DOSE STARTED ON AN UNKNOWN DATE.
     Route: 065
  15. NORVASC [Concomitant]
     Route: 065
     Dates: start: 20100101, end: 20130513
  16. NORVASC [Concomitant]
     Dosage: UNKNOWN DOSE STARTED ON AN UNKNOWN DATE.
     Route: 065
  17. PANADOL OSTEO [Concomitant]
     Route: 065
     Dates: start: 20100101, end: 20130513
  18. PANADOL OSTEO [Concomitant]
     Dosage: UNKNOWN DOSE STARTED ON AN UNKNOWN DATE.
     Route: 065
  19. PHYSIOTENS [Concomitant]
     Route: 065
     Dates: start: 20100101, end: 20130513
  20. PHYSIOTENS [Concomitant]
     Dosage: UNKNOWN DOSE STARTED ON AN UNKNOWN DATE.
     Route: 065

REACTIONS (5)
  - Swelling face [Recovered/Resolved]
  - Dyspnoea [Recovered/Resolved]
  - Asthma [Recovered/Resolved]
  - Respiratory tract infection viral [Unknown]
  - Rash macular [Unknown]
